FAERS Safety Report 11009390 (Version 1)
Quarter: 2015Q2

REPORT INFORMATION
  Report Type: Spontaneous
  Country: JP (occurrence: JP)
  Receive Date: 20150410
  Receipt Date: 20150410
  Transmission Date: 20150821
  Serious: Yes (Hospitalization, Other)
  Sender: FDA-Public Use
  Company Number: PHHY2015JP039082

PATIENT
  Age: 25 Year
  Sex: Female

DRUGS (4)
  1. PREDNISOLONE. [Suspect]
     Active Substance: PREDNISOLONE
     Indication: CROHN^S DISEASE
     Dosage: 30 MG, QD
     Route: 065
  2. ADALIMUMAB [Concomitant]
     Active Substance: ADALIMUMAB
     Indication: CROHN^S DISEASE
     Dosage: 160 MG, UNK
     Route: 058
  3. ADALIMUMAB [Concomitant]
     Active Substance: ADALIMUMAB
     Dosage: 40 UNK, UNK
     Route: 058
  4. ADALIMUMAB [Concomitant]
     Active Substance: ADALIMUMAB
     Dosage: 80 UNK, UNK
     Route: 058

REACTIONS (2)
  - Exposure during pregnancy [Unknown]
  - Threatened labour [Recovered/Resolved]
